FAERS Safety Report 5786636-4 (Version None)
Quarter: 2008Q2

REPORT INFORMATION
  Report Type: 
  Country: None (occurrence: None)
  Receive Date: 20080624
  Receipt Date: 20080616
  Transmission Date: 20081010
  Serious: Yes (Death)
  Sender: FDA-Public Use
  Company Number: US-GILEAD-2008-0016916

PATIENT
  Sex: Female

DRUGS (6)
  1. LETAIRIS [Suspect]
     Indication: PULMONARY ARTERIAL HYPERTENSION
     Route: 048
  2. CEFPODOXIME PROXETIL [Concomitant]
  3. FLUCONAZOLE [Concomitant]
  4. CLOTRIMAZOLE [Concomitant]
  5. LUMIGAN [Concomitant]
  6. NADOLOL [Concomitant]

REACTIONS (1)
  - RESPIRATORY FAILURE [None]
